FAERS Safety Report 10197355 (Version 1)
Quarter: 2014Q2

REPORT INFORMATION
  Report Type: Spontaneous
  Country: US (occurrence: None)
  Receive Date: 20140523
  Receipt Date: 20140523
  Transmission Date: 20141212
  Serious: No
  Sender: FDA-Public Use
  Company Number: None

PATIENT
  Age: 52 Year
  Sex: Female
  Weight: 57.15 kg

DRUGS (16)
  1. RISPERDAL [Suspect]
     Indication: BIPOLAR DISORDER
     Dates: start: 20120313, end: 20140226
  2. DIVALPROEX [Concomitant]
  3. METHYLPREDNISOLONE [Suspect]
  4. ROPINIROLE [Concomitant]
  5. STRATTERA [Concomitant]
  6. ABUTEROL [Concomitant]
  7. LORTAB [Concomitant]
  8. RAMIPRIL [Concomitant]
  9. CARBIDOPA [Concomitant]
  10. QUIETIAPINE [Concomitant]
  11. LONAZEPAM [Concomitant]
  12. DEXAMETHASONE [Concomitant]
  13. TRAZADONE [Concomitant]
  14. BENZTROPINE [Concomitant]
  15. ZOSTAVAX [Concomitant]
  16. CRESTOR [Concomitant]

REACTIONS (1)
  - Parkinson^s disease [None]
